FAERS Safety Report 8792383 (Version 3)
Quarter: 2012Q4

REPORT INFORMATION
  Report Type: 
  Country: US (occurrence: US)
  Receive Date: 20120918
  Receipt Date: 20121023
  Transmission Date: 20130627
  Serious: No
  Sender: FDA-Public Use
  Company Number: US-PFIZER INC-2012225182

PATIENT
  Age: 80 Year
  Sex: Female

DRUGS (3)
  1. NORVASC [Suspect]
     Dosage: UNK
     Dates: start: 20090902
  2. LIPITOR [Suspect]
     Dosage: UNK
     Dates: start: 20090902
  3. ACCUPRIL [Suspect]
     Dosage: UNK
     Dates: start: 20090902

REACTIONS (1)
  - No adverse event [Unknown]
